FAERS Safety Report 7700224-1 (Version None)
Quarter: 2011Q3

REPORT INFORMATION
  Report Type: 
  Country: None (occurrence: None)
  Receive Date: 20110822
  Receipt Date: 20110812
  Transmission Date: 20111222
  Serious: Yes (Hospitalization, Other)
  Sender: FDA-Public Use
  Company Number: BR-JNJFOC-20110807446

PATIENT
  Sex: Female

DRUGS (5)
  1. METOPROLOL SUCCINATE [Concomitant]
     Indication: HYPERTENSION
     Route: 065
     Dates: start: 20100101
  2. LEVOTHYROXINE SODIUM [Concomitant]
     Indication: HYPOTHYROIDISM
     Route: 065
     Dates: start: 20070101
  3. RASILEZ [Concomitant]
     Indication: DIURETIC THERAPY
     Route: 065
     Dates: start: 20100101
  4. TOPAMAX [Suspect]
     Indication: FOOD CRAVING
     Route: 048
     Dates: start: 20110501, end: 20110701
  5. RASILEZ [Concomitant]
     Indication: BLOOD PRESSURE
     Route: 065
     Dates: start: 20100101

REACTIONS (2)
  - LABORATORY TEST ABNORMAL [None]
  - HEPATITIS [None]
